FAERS Safety Report 6569452-5 (Version None)
Quarter: 2010Q1

REPORT INFORMATION
  Report Type: 
  Country: None (occurrence: None)
  Receive Date: 20100202
  Receipt Date: 20100202
  Transmission Date: 20100710
  Serious: Yes (Hospitalization)
  Sender: FDA-Public Use
  Company Number: None

PATIENT
  Sex: Male
  Weight: 72.6 kg

DRUGS (3)
  1. NEXIUM [Suspect]
     Indication: GASTROOESOPHAGEAL REFLUX DISEASE
     Dosage: 40 MG BID PO INCREASED DOSE TO BID 1 MONTH PRIOR
     Route: 048
  2. NEXIUM [Suspect]
     Indication: PEPTIC ULCER
     Dosage: 40 MG BID PO INCREASED DOSE TO BID 1 MONTH PRIOR
     Route: 048
  3. AVELOX [Suspect]
     Indication: SINUSITIS BACTERIAL
     Dosage: 400 MG QD PO PRESENTS ON DAY 6 OF 10 DAY AB COURSE
     Route: 048

REACTIONS (1)
  - PANCREATITIS ACUTE [None]
